FAERS Safety Report 17566016 (Version 2)
Quarter: 2020Q1

REPORT INFORMATION
  Report Type: Spontaneous
  Country: US (occurrence: US)
  Receive Date: 20200320
  Receipt Date: 20200323
  Transmission Date: 20200409
  Serious: Yes (Hospitalization)
  Sender: FDA-Public Use
  Company Number: US-PFIZER INC-2020118715

PATIENT
  Sex: Female
  Weight: 2.03 kg

DRUGS (14)
  1. ONDANSETRON [Suspect]
     Active Substance: ONDANSETRON
     Indication: NAUSEA
     Dosage: UNK
     Route: 064
  2. INSULIN [Suspect]
     Active Substance: INSULIN NOS
     Dosage: 54, DAILY PERI-PATUM STAGE AT 12 WEEKS
     Route: 064
  3. INSULIN [Suspect]
     Active Substance: INSULIN NOS
     Dosage: 53, DAILY PERI-PATUMSTAGE AT 16 WEEKS
     Route: 064
  4. INSULIN [Suspect]
     Active Substance: INSULIN NOS
     Dosage: 75, DAILY AT PERI-PARTUM STAGE 31 WEEK
     Route: 064
  5. INSULIN [Suspect]
     Active Substance: INSULIN NOS
     Dosage: 4, DAILY AT PERI-PARTUM STAGE AT LABOUR AND DELIVERY
     Route: 064
  6. LISINOPRIL. [Suspect]
     Active Substance: LISINOPRIL
     Dosage: UNK
     Route: 064
  7. PREGABALIN. [Suspect]
     Active Substance: PREGABALIN
     Dosage: UNK
     Route: 064
  8. INSULIN [Suspect]
     Active Substance: INSULIN NOS
     Dosage: 54, DAILY PERI-PATUM STAGE AT 24 WEEKS
     Route: 064
  9. APRIRIN (E.C.) [Suspect]
     Active Substance: ASPIRIN
     Dosage: UNK
     Route: 064
  10. ACETAMINOPHEN. [Suspect]
     Active Substance: ACETAMINOPHEN
     Indication: HEADACHE
     Dosage: UNK
     Route: 064
  11. INSULIN [Suspect]
     Active Substance: INSULIN NOS
     Indication: TYPE 1 DIABETES MELLITUS
     Dosage: 54, DAILY PERI-PATUM STAGE AT 8 WEEKS
     Route: 064
  12. INSULIN [Suspect]
     Active Substance: INSULIN NOS
     Dosage: 54, DAILY PERI-PATUM STAGE AT 20 WEEKS
     Route: 064
  13. INSULIN [Suspect]
     Active Substance: INSULIN NOS
     Dosage: 61, DAILY  PERI-PATUMSTAGE AT 28 WEEKS
     Route: 064
  14. INSULIN [Suspect]
     Active Substance: INSULIN NOS
     Dosage: 31, DAILY AT PERI-PARTUM STAGE AT 6 WEEK POST-PARTUM
     Route: 064

REACTIONS (5)
  - Neonatal hypoxia [Unknown]
  - Maternal exposure during pregnancy [Unknown]
  - Premature baby [Unknown]
  - Hyperbilirubinaemia neonatal [Unknown]
  - Cardiac murmur [Unknown]
